FAERS Safety Report 15752914 (Version 1)
Quarter: 2018Q4

REPORT INFORMATION
  Report Type: Spontaneous
  Country: CA (occurrence: CA)
  Receive Date: 20181221
  Receipt Date: 20181221
  Transmission Date: 20190205
  Serious: Yes (Hospitalization)
  Sender: FDA-Public Use
  Company Number: CA-ACTELION-A-US2016-141705

PATIENT
  Age: 45 Year
  Sex: Female
  Weight: 74.83 kg

DRUGS (20)
  1. MULTIVITAMIN [Concomitant]
     Active Substance: VITAMINS
  2. PANTOLOC [Concomitant]
     Active Substance: PANTOPRAZOLE SODIUM
  3. LASIX [Concomitant]
     Active Substance: FUROSEMIDE
  4. SULPHASALAZINE [Concomitant]
     Active Substance: SULFASALAZINE
  5. VITAMIN D [Concomitant]
     Active Substance: CHOLECALCIFEROL
  6. OMEGA 3 [Concomitant]
     Active Substance: OMEGA-3 FATTY ACIDS
  7. VITAMIN C [Concomitant]
     Active Substance: ASCORBIC ACID
  8. LEFLUNOMIDE. [Concomitant]
     Active Substance: LEFLUNOMIDE
  9. LEVETIRACETAM. [Concomitant]
     Active Substance: LEVETIRACETAM
  10. ENBREL [Concomitant]
     Active Substance: ETANERCEPT
  11. BROMOCRIPTINE [Concomitant]
     Active Substance: BROMOCRIPTINE
  12. CALCIUM [Concomitant]
     Active Substance: CALCIUM
  13. CARIPUL [Suspect]
     Active Substance: EPOPROSTENOL
     Indication: PULMONARY ARTERIAL HYPERTENSION
     Dosage: UNK
     Route: 042
     Dates: start: 20151201
  14. VOLIBRIS [Concomitant]
     Active Substance: AMBRISENTAN
  15. PROVIDONE IODINE [Concomitant]
  16. PREDNISONE. [Concomitant]
     Active Substance: PREDNISONE
  17. CRANBERRY. [Concomitant]
     Active Substance: CRANBERRY
  18. VITAMIN B12 [Concomitant]
     Active Substance: CYANOCOBALAMIN
  19. ADCIRCA [Concomitant]
     Active Substance: TADALAFIL
  20. REACTIN [Concomitant]

REACTIONS (5)
  - Catheter site pruritus [Not Recovered/Not Resolved]
  - Skin reaction [Not Recovered/Not Resolved]
  - Vascular device infection [Unknown]
  - Catheter removal [Not Recovered/Not Resolved]
  - Hospitalisation [Unknown]

NARRATIVE: CASE EVENT DATE: 20161027
